FAERS Safety Report 9013739 (Version 1)
Quarter: 2012Q4

REPORT INFORMATION
  Report Type: Spontaneous
  Country: PL (occurrence: None)
  Receive Date: 20121231
  Receipt Date: 20121231
  Transmission Date: 20130627
  Serious: Yes (Other)
  Sender: FDA-Public Use
  Company Number: DSA_61573_2012

PATIENT
  Age: 20 Year
  Sex: Male

DRUGS (1)
  1. WELLBUTRIN XR-BUPROPION HYDROCHLORIDE [Suspect]
     Indication: PRODUCT USED FOR UNKNOWN INDICATION
     Route: 048

REACTIONS (5)
  - Angina pectoris [None]
  - Fatigue [None]
  - Insomnia [None]
  - Drug dispensing error [None]
  - Incorrect dose administered [None]
